FAERS Safety Report 6854447-4 (Version None)
Quarter: 2010Q3

REPORT INFORMATION
  Report Type: 
  Country: None (occurrence: None)
  Receive Date: 20100717
  Receipt Date: 20071210
  Transmission Date: 20110219
  Serious: No
  Sender: FDA-Public Use
  Company Number: US-PFIZER INC-2008001943

PATIENT
  Age: 46 Year
  Sex: Female

DRUGS (9)
  1. CHANTIX [Suspect]
  2. SPIRIVA [Suspect]
  3. ESTROPIPATE [Concomitant]
  4. XOPENEX [Concomitant]
  5. COMBIVENT [Concomitant]
  6. ACIDOPHILUS [Concomitant]
  7. FISH OIL [Concomitant]
  8. FLAXSEED OIL [Concomitant]
  9. CRANBERRY [Concomitant]

REACTIONS (10)
  - CONSTIPATION [None]
  - DRY MOUTH [None]
  - EATING DISORDER [None]
  - INCREASED APPETITE [None]
  - OROPHARYNGEAL PAIN [None]
  - PANIC ATTACK [None]
  - RENAL PAIN [None]
  - SOMNOLENCE [None]
  - STRESS [None]
  - URINE OUTPUT DECREASED [None]
